FAERS Safety Report 6456321-4 (Version None)
Quarter: 2009Q4

REPORT INFORMATION
  Report Type: 
  Country: None (occurrence: None)
  Receive Date: 20091125
  Receipt Date: 20091118
  Transmission Date: 20100525
  Serious: Yes (Other)
  Sender: FDA-Public Use
  Company Number: DE-AMGEN-UK361785

PATIENT
  Age: 24 Year
  Sex: Female
  Weight: 48 kg

DRUGS (4)
  1. ARANESP [Suspect]
     Indication: PRE-EXISTING DISEASE
     Route: 058
     Dates: start: 20090504
  2. IRON [Concomitant]
  3. POTASSIUM CHLORIDE [Concomitant]
  4. VITAMIN D [Concomitant]

REACTIONS (3)
  - AZOTAEMIA [None]
  - HAEMOGLOBIN DECREASED [None]
  - HAEMOGLOBIN INCREASED [None]
